FAERS Safety Report 21388600 (Version 1)
Quarter: 2022Q3

REPORT INFORMATION
  Report Type: Other
  Country: TW (occurrence: None)
  Receive Date: 20220928
  Receipt Date: 20220928
  Transmission Date: 20221027
  Serious: Yes (Hospitalization)
  Sender: FDA-Public Use
  Company Number: TW-ROCHE-3188951

PATIENT

DRUGS (1)
  1. RITUXIMAB [Suspect]
     Active Substance: RITUXIMAB
     Indication: Rheumatoid arthritis
     Dosage: DURING EACH CYCLE TWO 500 MG RITUXIMAB INFUSIONS WERE ADMINISTERED TWO WEEKS APART
     Route: 042
     Dates: start: 2019

REACTIONS (1)
  - Transaminases increased [Unknown]
